FAERS Safety Report 5022292-0 (Version None)
Quarter: 2006Q2

REPORT INFORMATION
  Report Type: 
  Country: None (occurrence: None)
  Receive Date: 20060609
  Receipt Date: 20060526
  Transmission Date: 20061013
  Serious: Yes (Hospitalization)
  Sender: FDA-Public Use
  Company Number: FR-GLAXOSMITHKLINE-B0425818A

PATIENT
  Age: 11 Year
  Sex: Male

DRUGS (3)
  1. ZOPHREN [Suspect]
     Indication: VOMITING
     Route: 042
     Dates: start: 20060501, end: 20060501
  2. MORPHINE [Suspect]
     Indication: PROCEDURAL PAIN
     Route: 042
     Dates: start: 20060501
  3. MORPHINE [Suspect]
     Route: 048
     Dates: start: 20060501

REACTIONS (7)
  - CARDIAC ARREST [None]
  - CONVULSION [None]
  - DRUG INTERACTION [None]
  - ELECTROCARDIOGRAM QT PROLONGED [None]
  - EYE DISORDER [None]
  - LOSS OF CONSCIOUSNESS [None]
  - PALLOR [None]
